FAERS Safety Report 6291489-4 (Version None)
Quarter: 2009Q3

REPORT INFORMATION
  Report Type: 
  Country: None (occurrence: None)
  Receive Date: 20090730
  Receipt Date: 20070208
  Transmission Date: 20100115
  Serious: Yes (Life-Threatening, Hospitalization)
  Sender: FDA-Public Use
  Company Number: SE-PFIZER INC-2006150543

PATIENT
  Age: 59 Year

DRUGS (6)
  1. LYRICA [Suspect]
     Indication: NEURALGIA
     Dosage: 75 MG, 2X/DAY
     Route: 048
     Dates: start: 20061116, end: 20061124
  2. LYRICA [Suspect]
     Indication: HERPES ZOSTER
  3. ALVEDON [Suspect]
     Indication: HERPES ZOSTER
     Route: 048
     Dates: start: 20061019, end: 20061128
  4. TRADOLAN [Concomitant]
     Dates: start: 20061019, end: 20061101
  5. POTASSIUM CHLORIDE [Concomitant]
     Route: 048
  6. DEXTROPROPOXYPHENE NAPSILATE [Concomitant]
     Route: 048
     Dates: start: 20061124

REACTIONS (5)
  - ACUTE HEPATIC FAILURE [None]
  - CHROMATURIA [None]
  - DRUG INEFFECTIVE [None]
  - NAUSEA [None]
  - TRANSAMINASES INCREASED [None]
